FAERS Safety Report 4443900-9 (Version None)
Quarter: 2004Q3

REPORT INFORMATION
  Report Type: 
  Country: None (occurrence: None)
  Receive Date: 20040729
  Receipt Date: 20040419
  Transmission Date: 20050211
  Serious: Yes (Other)
  Sender: FDA-Public Use
  Company Number: US-JNJFOC-20040404437

PATIENT
  Age: 16 Year
  Sex: Male

DRUGS (3)
  1. RISPERDAL [Suspect]
     Indication: BIPOLAR DISORDER
     Route: 048
     Dates: start: 20020101
  2. DEPAKOTE [Concomitant]
  3. KEPPRA [Concomitant]

REACTIONS (4)
  - ANXIETY [None]
  - DIABETES MELLITUS [None]
  - INSOMNIA [None]
  - SEDATION [None]
